FAERS Safety Report 9165757 (Version 1)
Quarter: 2013Q1

REPORT INFORMATION
  Report Type: Spontaneous
  Country: CH (occurrence: None)
  Receive Date: 20130304
  Receipt Date: 20130304
  Transmission Date: 20140127
  Serious: Yes (Hospitalization, Other)
  Sender: FDA-Public Use
  Company Number: CH-JNJFOC-20130211736

PATIENT
  Age: 90 Year
  Sex: Female

DRUGS (1)
  1. DACOGEN (DECITABINE) LYOPHILIZED POWDER [Suspect]
     Indication: ACUTE MYELOID LEUKAEMIA
     Dosage: 20 MG/M2, 1 IN 4 WEEK, INTRAVENOUS
     Route: 042
     Dates: start: 20130204, end: 20130208

REACTIONS (2)
  - Diverticulitis [None]
  - Ileus [None]
